FAERS Safety Report 4898249-7 (Version None)
Quarter: 2006Q1

REPORT INFORMATION
  Report Type: 
  Country: None (occurrence: None)
  Receive Date: 20060127
  Receipt Date: 20060113
  Transmission Date: 20060701
  Serious: Yes (Other)
  Sender: FDA-Public Use
  Company Number: US_0409105428

PATIENT
  Age: 11 Year
  Sex: Male

DRUGS (2)
  1. STRATTERA [Suspect]
     Indication: ATTENTION DEFICIT/HYPERACTIVITY DISORDER
     Dosage: 40 MG, DAILY (1/D)
     Dates: start: 20021215
  2. CLONIDINE [Concomitant]

REACTIONS (16)
  - ABNORMAL BEHAVIOUR [None]
  - CONVULSION [None]
  - COORDINATION ABNORMAL [None]
  - DECREASED APPETITE [None]
  - DISTRACTIBILITY [None]
  - HYPOAESTHESIA [None]
  - HYPOTONIA [None]
  - IMPULSIVE BEHAVIOUR [None]
  - INSOMNIA [None]
  - MEMORY IMPAIRMENT [None]
  - METABOLIC DISORDER [None]
  - MUSCULAR WEAKNESS [None]
  - NERVOUSNESS [None]
  - OPPOSITIONAL DEFIANT DISORDER [None]
  - SELF ESTEEM DECREASED [None]
  - SLEEP WALKING [None]
